FAERS Safety Report 14618140 (Version 5)
Quarter: 2019Q4

REPORT INFORMATION
  Report Type: Report from Study
  Country: BE (occurrence: BE)
  Receive Date: 20180309
  Receipt Date: 20191129
  Transmission Date: 20200122
  Serious: Yes (Hospitalization, Other)
  Sender: FDA-Public Use
  Company Number: BE-PFIZER INC-2018090614

PATIENT
  Age: 73 Year
  Sex: Female
  Weight: 75 kg

DRUGS (57)
  1. CARBOPLATIN. [Suspect]
     Active Substance: CARBOPLATIN
     Indication: OVARIAN CANCER
     Dosage: 1 (UNIT UNKNOWN), WEEKLY (2.7 AUC)
     Route: 042
     Dates: start: 20160609
  2. BEVACIZUMAB. [Suspect]
     Active Substance: BEVACIZUMAB
     Dosage: 1005 MG, EVERY 3 WEEKS
     Route: 042
     Dates: start: 20160705
  3. INNOHEP [Concomitant]
     Active Substance: TINZAPARIN SODIUM
     Dosage: UNK
     Route: 065
     Dates: start: 20160726, end: 20160928
  4. PLASMALYTE A [Concomitant]
     Dosage: UNK
     Route: 065
     Dates: start: 20160929, end: 20160930
  5. PIPERACILLIN/TAZOBACTAM [Concomitant]
     Active Substance: PIPERACILLIN SODIUM\TAZOBACTAM SODIUM
     Indication: DIARRHOEA
     Dosage: UNK
     Route: 065
     Dates: start: 20160717, end: 20160721
  6. ZOLPIDEM [Concomitant]
     Active Substance: ZOLPIDEM TARTRATE
     Dosage: UNK
     Route: 065
     Dates: start: 2014
  7. PANTOMED [PANTOPRAZOLE SODIUM SESQUIHYDRATE] [Concomitant]
     Active Substance: PANTOPRAZOLE SODIUM
     Indication: NAUSEA
     Dosage: UNK
     Route: 065
     Dates: start: 20160709
  8. MORPHINE [Concomitant]
     Active Substance: MORPHINE
     Dosage: UNK
     Route: 065
     Dates: start: 20161001, end: 20161001
  9. PACLITAXEL. [Suspect]
     Active Substance: PACLITAXEL
     Dosage: 60 MG/M2, WEEKLY
     Route: 042
     Dates: start: 20160623
  10. INNOHEP [Concomitant]
     Active Substance: TINZAPARIN SODIUM
     Dosage: UNK
     Route: 065
     Dates: start: 20160929, end: 20161230
  11. DEXAMETHASONE. [Concomitant]
     Active Substance: DEXAMETHASONE
     Indication: NAUSEA
     Dosage: UNK
     Route: 065
     Dates: start: 20160709, end: 20160710
  12. BISOPROLOL [Concomitant]
     Active Substance: BISOPROLOL
     Dosage: UNK
     Route: 065
     Dates: start: 2011
  13. CEFAZOLINE [Concomitant]
     Active Substance: CEFAZOLIN SODIUM
     Dosage: UNK
     Route: 065
     Dates: start: 20160930, end: 20160930
  14. PARACETAMOL [Concomitant]
     Active Substance: ACETAMINOPHEN
     Dosage: UNK
     Route: 065
     Dates: start: 20170315
  15. DAKTARIN /00310801/ [Concomitant]
     Active Substance: MICONAZOLE NITRATE
     Indication: RASH
     Dosage: UNK
     Route: 065
     Dates: start: 20160721, end: 20160721
  16. TAVANIC [Concomitant]
     Active Substance: LEVOFLOXACIN
     Indication: DIARRHOEA
     Dosage: UNK
     Route: 065
     Dates: start: 20160721, end: 20160723
  17. REMERGON [Concomitant]
     Active Substance: MIRTAZAPINE
     Indication: NAUSEA
     Dosage: UNK
     Route: 065
     Dates: start: 20170602
  18. CARBOPLATIN. [Suspect]
     Active Substance: CARBOPLATIN
     Dosage: 1 (UNIT UNKNOWN), WEEKLY (2.7 AUC)
     Route: 042
     Dates: start: 20160705, end: 20160712
  19. INNOHEP [Concomitant]
     Active Substance: TINZAPARIN SODIUM
     Dosage: UNK
     Route: 065
     Dates: start: 20160629, end: 20160716
  20. AACIDEXAM /00016001/ [Concomitant]
     Indication: NAUSEA
     Dosage: UNK
     Route: 065
     Dates: start: 20160701, end: 20160704
  21. AACIDEXAM /00016001/ [Concomitant]
     Dosage: UNK
     Route: 065
     Dates: start: 20160720, end: 20160722
  22. POTASSIUM CHLORIDE. [Concomitant]
     Active Substance: POTASSIUM CHLORIDE
     Indication: HYPOKALAEMIA
     Dosage: UNK
     Route: 065
     Dates: start: 20160717, end: 20160717
  23. TOTALIP [Concomitant]
     Active Substance: ATORVASTATIN
     Dosage: UNK
     Route: 065
     Dates: start: 2004, end: 20170518
  24. PARACETAMOL FRESENIUS [Concomitant]
     Indication: DIARRHOEA
     Dosage: UNK
     Route: 065
     Dates: start: 20160718, end: 20160718
  25. ONDANSETRON [Concomitant]
     Active Substance: ONDANSETRON
     Indication: NAUSEA
     Dosage: UNK
     Route: 065
     Dates: start: 20160724, end: 20160816
  26. BURINEX [Concomitant]
     Active Substance: BUMETANIDE
     Indication: OEDEMA PERIPHERAL
     Dosage: UNK
     Route: 065
     Dates: start: 20170609
  27. PACLITAXEL. [Suspect]
     Active Substance: PACLITAXEL
     Indication: OVARIAN CANCER
     Dosage: 60 MG/M2, WEEKLY
     Route: 042
     Dates: start: 20160609
  28. PACLITAXEL. [Suspect]
     Active Substance: PACLITAXEL
     Dosage: 60 MG/M2, WEEKLY
     Route: 042
     Dates: start: 20160705, end: 20160712
  29. IMODIUM [Concomitant]
     Active Substance: LOPERAMIDE HYDROCHLORIDE
     Dosage: UNK
     Route: 065
     Dates: start: 20160712, end: 20161110
  30. POTASSIUM CHLORIDE. [Concomitant]
     Active Substance: POTASSIUM CHLORIDE
     Dosage: UNK
     Route: 065
     Dates: start: 20160930, end: 20160930
  31. OPIUM /00036301/ [Concomitant]
     Active Substance: OPIUM
     Indication: DIARRHOEA
     Dosage: UNK
     Route: 065
     Dates: start: 20160720, end: 20160723
  32. RAMIPRIL. [Concomitant]
     Active Substance: RAMIPRIL
     Indication: HYPERTENSION
     Dosage: UNK
     Route: 065
     Dates: start: 20170519
  33. CONTRAMAL [Concomitant]
     Active Substance: TRAMADOL HYDROCHLORIDE
     Indication: ABDOMINAL PAIN
     Dosage: UNK
     Route: 065
     Dates: start: 20170602
  34. BEVACIZUMAB. [Suspect]
     Active Substance: BEVACIZUMAB
     Indication: OVARIAN CANCER
     Dosage: 1125 MG, EVERY 3 WEEKS
     Route: 042
     Dates: start: 20160609
  35. LORMETAZEPAM [Concomitant]
     Active Substance: LORMETAZEPAM
     Dosage: UNK
     Route: 065
     Dates: start: 20160720, end: 20160720
  36. NEUPOGEN [Concomitant]
     Active Substance: FILGRASTIM
     Indication: NEUTROPENIA
     Dosage: UNK
     Route: 065
     Dates: start: 20160717, end: 20160721
  37. ZYPREXA [Concomitant]
     Active Substance: OLANZAPINE
     Indication: ANXIETY
     Dosage: UNK
     Route: 065
     Dates: start: 20161106
  38. CARBOPLATIN. [Suspect]
     Active Substance: CARBOPLATIN
     Dosage: 1 UNK, WEEKLY (2 AUC)
     Route: 042
     Dates: start: 20160726
  39. PACLITAXEL. [Suspect]
     Active Substance: PACLITAXEL
     Dosage: 60 MG/M2, WEEKLY
     Route: 042
     Dates: start: 20160726
  40. FLAGYL [Concomitant]
     Active Substance: METRONIDAZOLE\METRONIDAZOLE HYDROCHLORIDE
     Dosage: UNK
     Route: 065
     Dates: start: 20160930, end: 20160930
  41. AACIDEXAM /00016001/ [Concomitant]
     Dosage: UNK
     Route: 065
     Dates: start: 20161001, end: 20161001
  42. ZOFRAN [Concomitant]
     Active Substance: ONDANSETRON HYDROCHLORIDE
     Indication: NAUSEA
     Dosage: UNK
     Route: 065
     Dates: start: 20160701, end: 20160704
  43. POTASSIUM CHLORIDE. [Concomitant]
     Active Substance: POTASSIUM CHLORIDE
     Dosage: UNK
     Route: 065
     Dates: start: 20160719, end: 20160721
  44. DAFALGAN [Concomitant]
     Active Substance: ACETAMINOPHEN
     Dosage: UNK
     Route: 065
     Dates: start: 2016, end: 20170213
  45. XANAX [Concomitant]
     Active Substance: ALPRAZOLAM
     Indication: NAUSEA
     Dosage: UNK
     Route: 065
     Dates: start: 20160708
  46. CARBOPLATIN. [Suspect]
     Active Substance: CARBOPLATIN
     Dosage: 1 (UNIT UNKNOWN), WEEKLY (2.7 AUC)
     Route: 042
     Dates: start: 20160623
  47. BEVACIZUMAB. [Suspect]
     Active Substance: BEVACIZUMAB
     Dosage: 944 MG, EVERY 3 WEEKS
     Route: 042
     Dates: start: 20160725
  48. TEMESTA /00273201/ [Concomitant]
     Active Substance: LORAZEPAM
     Indication: ANXIETY
     Dosage: UNK
     Route: 065
     Dates: start: 20160704, end: 20160704
  49. IMODIUM [Concomitant]
     Active Substance: LOPERAMIDE HYDROCHLORIDE
     Indication: DIARRHOEA
     Dosage: UNK
     Route: 065
     Dates: start: 20160701, end: 20160701
  50. ZOFRAN [Concomitant]
     Active Substance: ONDANSETRON HYDROCHLORIDE
     Dosage: UNK
     Route: 065
     Dates: start: 20160712, end: 20160723
  51. ZYPREXA [Concomitant]
     Active Substance: OLANZAPINE
     Indication: NAUSEA
     Dosage: UNK
  52. ONDANSETRON BRAUN [Concomitant]
     Dosage: UNK
     Route: 065
     Dates: start: 20160930, end: 20161002
  53. INNOHEP [Concomitant]
     Active Substance: TINZAPARIN SODIUM
     Dosage: UNK
     Route: 065
     Dates: start: 20160608, end: 20160626
  54. CORDARONE [Concomitant]
     Active Substance: AMIODARONE HYDROCHLORIDE
     Dosage: UNK
     Route: 065
     Dates: start: 2013, end: 20160711
  55. MOVIPREP [Concomitant]
     Active Substance: ASCORBIC ACID\POLYETHYLENE GLYCOL 3350\POTASSIUM CHLORIDE\SODIUM ASCORBATE\SODIUM CHLORIDE\SODIUM SULFATE
     Dosage: UNK
     Route: 065
     Dates: start: 20160929, end: 20160929
  56. ASAFLOW [Concomitant]
     Active Substance: ASPIRIN
     Dosage: UNK
     Route: 065
     Dates: start: 2011, end: 20160628
  57. VASEXTEN [Concomitant]
     Active Substance: BARNIDIPINE HYDROCHLORIDE
     Indication: HYPERTENSION
     Dosage: UNK
     Route: 065
     Dates: start: 201705

REACTIONS (37)
  - Weight decreased [Recovered/Resolved]
  - Hypokalaemia [Recovered/Resolved]
  - Urosepsis [Recovered/Resolved]
  - Abdominal pain upper [Recovered/Resolved]
  - Diarrhoea haemorrhagic [Recovered/Resolved]
  - Oedema peripheral [Not Recovered/Not Resolved]
  - Dyspepsia [Recovered/Resolved]
  - Dry mouth [Recovered/Resolved]
  - Anxiety [Not Recovered/Not Resolved]
  - Nausea [Not Recovered/Not Resolved]
  - Neutropenia [Recovered/Resolved]
  - Stomatitis [Recovered/Resolved]
  - Dehydration [Recovered/Resolved]
  - Faecaloma [Recovered/Resolved]
  - Abdominal pain [Not Recovered/Not Resolved]
  - Epistaxis [Recovered/Resolved]
  - Fatigue [Not Recovered/Not Resolved]
  - Somnolence [Not Recovered/Not Resolved]
  - Nausea [Not Recovered/Not Resolved]
  - Decreased appetite [Recovered/Resolved]
  - Peripheral sensory neuropathy [Not Recovered/Not Resolved]
  - Abdominal pain [Not Recovered/Not Resolved]
  - Febrile neutropenia [Recovered/Resolved]
  - Constipation [Not Recovered/Not Resolved]
  - Anaemia [Recovered/Resolved]
  - Dizziness [Recovered/Resolved]
  - Hypertension [Not Recovered/Not Resolved]
  - Thrombocytopenia [Recovered/Resolved]
  - Proteinuria [Not Recovered/Not Resolved]
  - Asthenia [Recovered/Resolved]
  - Rash pruritic [Recovered/Resolved]
  - Dry skin [Recovered/Resolved]
  - Diarrhoea [Recovered/Resolved]
  - Hypokalaemia [Recovered/Resolved]
  - Epistaxis [Recovered/Resolved]
  - Depressed mood [Not Recovered/Not Resolved]
  - Electrocardiogram QT prolonged [Not Recovered/Not Resolved]

NARRATIVE: CASE EVENT DATE: 20160616
